FAERS Safety Report 5704290-4 (Version None)
Quarter: 2008Q2

REPORT INFORMATION
  Report Type: 
  Country: None (occurrence: None)
  Receive Date: 20080414
  Receipt Date: 20080404
  Transmission Date: 20081010
  Serious: Yes (Death)
  Sender: FDA-Public Use
  Company Number: JP-ASTRAZENECA-2008AP02586

PATIENT
  Age: 21617 Day
  Sex: Male

DRUGS (4)
  1. SEROQUEL [Suspect]
     Indication: HALLUCINATION
     Route: 048
     Dates: start: 20080403
  2. CARBIDOPA AND LEVODOPA [Concomitant]
     Indication: PARKINSON'S DISEASE
     Route: 048
     Dates: start: 19980127
  3. SYMMETREL [Concomitant]
     Indication: PARKINSON'S DISEASE
     Route: 048
     Dates: start: 20070829
  4. REQUIP [Concomitant]
     Indication: PARKINSON'S DISEASE
     Route: 048
     Dates: start: 20070117

REACTIONS (1)
  - SUDDEN DEATH [None]
